FAERS Safety Report 21253278 (Version 1)
Quarter: 2022Q3

REPORT INFORMATION
  Report Type: Spontaneous
  Country: US (occurrence: None)
  Receive Date: 20220824
  Receipt Date: 20220824
  Transmission Date: 20221027
  Serious: Yes (Hospitalization)
  Sender: FDA-Public Use
  Company Number: None

PATIENT
  Age: 71 Year
  Sex: Female
  Weight: 89.3 kg

DRUGS (2)
  1. PEMBROLIZUMAB [Suspect]
     Active Substance: PEMBROLIZUMAB
     Dates: end: 20220721
  2. ALIMTA [Suspect]
     Active Substance: PEMETREXED DISODIUM
     Dates: end: 20220721

REACTIONS (6)
  - Pyrexia [None]
  - Diarrhoea [None]
  - Pulmonary embolism [None]
  - Pneumonitis [None]
  - Acute respiratory failure [None]
  - Pneumonia bacterial [None]

NARRATIVE: CASE EVENT DATE: 20220803
